FAERS Safety Report 9580706 (Version 2)
Quarter: 2013Q4

REPORT INFORMATION
  Report Type: Spontaneous
  Country: US (occurrence: US)
  Receive Date: 20131002
  Receipt Date: 20131002
  Transmission Date: 20140711
  Serious: Yes (Hospitalization)
  Sender: FDA-Public Use
  Company Number: US-ROCHE-1280035

PATIENT
  Age: 55 Year
  Sex: Male
  Weight: 63.56 kg

DRUGS (7)
  1. ZELBORAF [Suspect]
     Indication: METASTATIC MALIGNANT MELANOMA
     Dosage: 960MG ORALLY BID
     Route: 048
     Dates: start: 20130912, end: 20130919
  2. PRAVASTATIN [Concomitant]
     Route: 048
  3. DECADRON [Concomitant]
  4. KEPPRA [Concomitant]
  5. ZETIA [Concomitant]
     Route: 048
  6. CITALOPRAM [Concomitant]
     Route: 048
  7. CARVEDILOL [Concomitant]
     Route: 048

REACTIONS (5)
  - Stevens-Johnson syndrome [Not Recovered/Not Resolved]
  - Blister [Unknown]
  - Oedema peripheral [Unknown]
  - Stomatitis [Unknown]
  - Abdominal pain [Unknown]
